FAERS Safety Report 19497151 (Version 2)
Quarter: 2021Q3

REPORT INFORMATION
  Report Type: Spontaneous
  Country: CA (occurrence: GB)
  Receive Date: 20210706
  Receipt Date: 20210729
  Transmission Date: 20211014
  Serious: Yes (Other)
  Sender: FDA-Public Use
  Company Number: GB-ENDO PHARMACEUTICALS INC-2021-010096

PATIENT
  Age: 19 Year
  Sex: Female
  Weight: 44 kg

DRUGS (1)
  1. FLUOXETINE HYDROCHLORIDE. [Suspect]
     Active Substance: FLUOXETINE HYDROCHLORIDE
     Indication: DEPRESSION
     Dosage: UNK UNKNOWN, UNKNOWN
     Route: 048
     Dates: start: 2018, end: 2019

REACTIONS (2)
  - Drug ineffective [Unknown]
  - Photophobia [Recovered/Resolved with Sequelae]

NARRATIVE: CASE EVENT DATE: 2018
